FAERS Safety Report 8028772-8 (Version None)
Quarter: 2012Q1

REPORT INFORMATION
  Report Type: 
  Country: None (occurrence: None)
  Receive Date: 20120106
  Receipt Date: 20120103
  Transmission Date: 20120608
  Serious: Yes (Disabling)
  Sender: FDA-Public Use
  Company Number: US-MERCK-1201USA00220

PATIENT
  Age: 52 Year
  Sex: Female

DRUGS (7)
  1. ACETAMINOPHEN [Concomitant]
     Route: 065
  2. ASPIRIN [Concomitant]
     Route: 065
  3. ASPIRIN [Concomitant]
     Route: 065
  4. DIOVAN [Concomitant]
     Indication: HYPERTENSION
     Route: 065
  5. MEVACOR [Suspect]
     Indication: BLOOD CHOLESTEROL
     Route: 048
     Dates: start: 20020101
  6. NIACIN [Suspect]
     Route: 065
  7. LIPITOR [Concomitant]
     Route: 065

REACTIONS (3)
  - DRUG INEFFECTIVE [None]
  - DYSSTASIA [None]
  - ARTHRALGIA [None]
